FAERS Safety Report 24339408 (Version 1)
Quarter: 2024Q3

REPORT INFORMATION
  Report Type: Spontaneous
  Country: RO (occurrence: RO)
  Receive Date: 20240919
  Receipt Date: 20240919
  Transmission Date: 20241017
  Serious: Yes (Other)
  Sender: AZURITY PHARMACEUTICALS
  Company Number: RO-AZURITY PHARMACEUTICALS, INC.-AZR202409-000614

PATIENT
  Age: 13 Year
  Sex: Male

DRUGS (1)
  1. IVERMECTIN [Suspect]
     Active Substance: IVERMECTIN
     Indication: Acarodermatitis
     Dosage: 6 MILLIGRAM, UNK (6 MG PER DOSE IN TWO DOSES AT 7 DAYS APART)
     Route: 048

REACTIONS (1)
  - Nephropathy toxic [Recovered/Resolved]
